FAERS Safety Report 6207928-0 (Version None)
Quarter: 2009Q2

REPORT INFORMATION
  Report Type: 
  Country: None (occurrence: None)
  Receive Date: 20090529
  Receipt Date: 20080707
  Transmission Date: 20091009
  Serious: No
  Sender: FDA-Public Use
  Company Number: A0737279A

PATIENT
  Sex: Male

DRUGS (1)
  1. FLOLAN [Suspect]
     Route: 042

REACTIONS (2)
  - CATHETER RELATED COMPLICATION [None]
  - CATHETER RELATED INFECTION [None]
